FAERS Safety Report 20411178 (Version 1)
Quarter: 2022Q1

REPORT INFORMATION
  Report Type: Spontaneous
  Country: US (occurrence: None)
  Receive Date: 20220201
  Receipt Date: 20220201
  Transmission Date: 20220423
  Serious: Yes (Other)
  Sender: FDA-Public Use
  Company Number: None

PATIENT
  Age: 14 Year
  Sex: Female
  Weight: 72 kg

DRUGS (7)
  1. AIMOVIG [Suspect]
     Active Substance: ERENUMAB-AOOE
     Indication: Migraine
     Dosage: FREQUENCY : MONTHLY;?
     Route: 058
  2. NIKKI [Concomitant]
     Active Substance: DROSPIRENONE\ETHINYL ESTRADIOL
  3. INDOMETHACIN 25MG [Concomitant]
  4. BUPROPION  ER 150MG [Concomitant]
  5. VENLAFAXINE ER 120MG [Concomitant]
  6. VENLAFAXINE [Concomitant]
     Active Substance: VENLAFAXINE HYDROCHLORIDE
  7. MINOCYCLINE [Concomitant]
     Active Substance: MINOCYCLINE HYDROCHLORIDE

REACTIONS (1)
  - Rash [None]

NARRATIVE: CASE EVENT DATE: 20220131
